FAERS Safety Report 19068466 (Version 1)
Quarter: 2021Q1

REPORT INFORMATION
  Report Type: Spontaneous
  Country: US (occurrence: US)
  Receive Date: 20210327
  Receipt Date: 20210327
  Transmission Date: 20210420
  Serious: Yes (Other)
  Sender: FDA-Public Use
  Company Number: None

PATIENT
  Age: 53 Year
  Sex: Female
  Weight: 51.3 kg

DRUGS (6)
  1. MENEST [Concomitant]
     Active Substance: ESTROGENS, ESTERIFIED
  2. MULTIVITAMIN [Concomitant]
     Active Substance: VITAMINS
  3. TRELEGY ELLIPTA [Concomitant]
     Active Substance: FLUTICASONE FUROATE\UMECLIDINIUM BROMIDE\VILANTEROL TRIFENATATE
  4. VITAMIN D [Concomitant]
     Active Substance: VITAMIN D NOS
  5. IRON [Concomitant]
     Active Substance: IRON
  6. GAMUNEX?C [Suspect]
     Active Substance: HUMAN IMMUNOGLOBULIN G
     Indication: IMMUNODEFICIENCY COMMON VARIABLE
     Dosage: ?          OTHER FREQUENCY:INFUSE EVERY 3 WEE;?
     Route: 042
     Dates: end: 20210326

REACTIONS (5)
  - Chills [None]
  - Erythema [None]
  - Dyspnoea [None]
  - Asthenia [None]
  - Urticaria [None]

NARRATIVE: CASE EVENT DATE: 20210326
